FAERS Safety Report 8488643-X (Version None)
Quarter: 2012Q2

REPORT INFORMATION
  Report Type: 
  Country: None (occurrence: None)
  Receive Date: 20120625
  Receipt Date: 20120618
  Transmission Date: 20120825
  Serious: Yes (Hospitalization)
  Sender: FDA-Public Use
  Company Number: VAL_00775_2012

PATIENT
  Age: 71 Year
  Sex: Female

DRUGS (2)
  1. CARBAMAZEPINE [Suspect]
     Indication: CONVULSION
     Dosage: 400 MG BID (MAINTENACE DOSE), DF
     Dates: start: 20040101, end: 20091101
  2. CARBAMAZEPINE [Suspect]
     Indication: CONVULSION
     Dosage: 400 MG BID (MAINTENACE DOSE), DF
     Dates: start: 19840101, end: 20040101

REACTIONS (1)
  - LICHEN PLANUS [None]
